FAERS Safety Report 10951354 (Version 1)
Quarter: 2015Q1

REPORT INFORMATION
  Report Type: Report from Study
  Country: US (occurrence: US)
  Receive Date: 20150324
  Receipt Date: 20150324
  Transmission Date: 20150721
  Serious: Yes (Hospitalization, Other)
  Sender: FDA-Public Use
  Company Number: PHEH2015US003603

PATIENT
  Sex: Female

DRUGS (1)
  1. GILENYA [Suspect]
     Active Substance: FINGOLIMOD HYDROCHLORIDE
     Indication: MULTIPLE SCLEROSIS
     Dosage: 0.5 MG, QD
     Route: 048

REACTIONS (6)
  - Malaise [Unknown]
  - Postoperative wound complication [Unknown]
  - Influenza [Recovering/Resolving]
  - Multiple sclerosis [Unknown]
  - Pneumonia [Recovering/Resolving]
  - Memory impairment [Recovering/Resolving]
